FAERS Safety Report 25818852 (Version 1)
Quarter: 2025Q3

REPORT INFORMATION
  Report Type: Report from Study
  Country: US (occurrence: US)
  Receive Date: 20250918
  Receipt Date: 20250918
  Transmission Date: 20251020
  Serious: No
  Sender: MALLINCKRODT
  Company Number: US-MALLINCKRODT-MNK202505449

PATIENT
  Sex: Male

DRUGS (2)
  1. CORTICOTROPIN [Suspect]
     Active Substance: CORTICOTROPIN
     Indication: Dermatomyositis
  2. CORTICOTROPIN [Suspect]
     Active Substance: CORTICOTROPIN
     Indication: Dermatomyositis

REACTIONS (8)
  - Weight decreased [Unknown]
  - Anxiety [Unknown]
  - Nervousness [Unknown]
  - Sensitive skin [Unknown]
  - Skin striae [Unknown]
  - Injection site pain [Unknown]
  - Injection site discharge [Unknown]
  - Injection site discomfort [Unknown]
